FAERS Safety Report 5137538-8 (Version None)
Quarter: 2006Q4

REPORT INFORMATION
  Report Type: 
  Country: None (occurrence: None)
  Receive Date: 20061030
  Receipt Date: 20051116
  Transmission Date: 20070319
  Serious: No
  Sender: FDA-Public Use
  Company Number: US-GLAXOSMITHKLINE-A0582585A

PATIENT
  Age: 62 Year
  Sex: Female

DRUGS (7)
  1. ADVAIR HFA [Suspect]
     Indication: ASTHMA
     Route: 055
  2. NEXIUM [Concomitant]
  3. TARKA [Concomitant]
  4. ZYRTEC [Concomitant]
     Route: 065
  5. ALLERGY SHOTS [Concomitant]
  6. CARAFATE [Concomitant]
  7. METOCLOPRAMIDA [Concomitant]
     Route: 065

REACTIONS (2)
  - PHARMACEUTICAL PRODUCT COMPLAINT [None]
  - RESPIRATORY TRACT CONGESTION [None]
